FAERS Safety Report 14475965 (Version 1)
Quarter: 2018Q1

REPORT INFORMATION
  Report Type: Spontaneous
  Country: BE (occurrence: BE)
  Receive Date: 20180201
  Receipt Date: 20180201
  Transmission Date: 20180509
  Serious: Yes (Other)
  Sender: FDA-Public Use
  Company Number: BE-PFIZER INC-2018042202

PATIENT
  Age: 34 Year
  Sex: Female

DRUGS (1)
  1. MEDROL [Suspect]
     Active Substance: METHYLPREDNISOLONE
     Indication: ANTIEMETIC SUPPORTIVE CARE
     Dosage: 32 MG, UNK

REACTIONS (1)
  - Diabetes mellitus [Unknown]
